FAERS Safety Report 6449822-6 (Version None)
Quarter: 2009Q4

REPORT INFORMATION
  Report Type: 
  Country: None (occurrence: None)
  Receive Date: 20091120
  Receipt Date: 20090402
  Transmission Date: 20100525
  Serious: Yes (Other)
  Sender: FDA-Public Use
  Company Number: US-AMGEN-QUU337618

PATIENT
  Sex: Male
  Weight: 113.5 kg

DRUGS (9)
  1. ENBREL [Suspect]
     Indication: PSORIATIC ARTHROPATHY
     Route: 058
     Dates: start: 20050401, end: 20081201
  2. ENBREL [Suspect]
     Indication: PSORIASIS
  3. TENORETIC 100 [Concomitant]
  4. FELDENE [Concomitant]
  5. ASCORBIC ACID [Concomitant]
  6. TRIAMCINOLONE [Concomitant]
  7. LIPITOR [Concomitant]
  8. UNSPECIFIED MEDICATION [Concomitant]
  9. CLOBETASOL PROPIONATE [Concomitant]

REACTIONS (11)
  - ARTHRALGIA [None]
  - ERYTHEMA [None]
  - HYPERGLYCAEMIA [None]
  - INVESTIGATION ABNORMAL [None]
  - JOINT SWELLING [None]
  - MALIGNANT MELANOMA [None]
  - MUSCULOSKELETAL STIFFNESS [None]
  - PAIN IN EXTREMITY [None]
  - PSORIASIS [None]
  - PSORIATIC ARTHROPATHY [None]
  - SYNOVITIS [None]
